FAERS Safety Report 8738147 (Version 2)
Quarter: 2012Q4

REPORT INFORMATION
  Report Type: 
  Country: US (occurrence: US)
  Receive Date: 20120823
  Receipt Date: 20120913
  Transmission Date: 20130627
  Serious: Yes (Other)
  Sender: FDA-Public Use
  Company Number: US-009507513-1208USA005940

PATIENT

DRUGS (4)
  1. UNSPECIFIED INGREDIENT [Suspect]
     Dosage: 800 mg, q8h
  2. UNSPECIFIED INGREDIENT [Suspect]
     Dosage: 800 mg, q8h
     Dates: start: 20120716, end: 201207
  3. RIBAPAK [Suspect]
     Indication: HEPATITIS C
  4. PEGASYS [Suspect]
     Indication: HEPATITIS C

REACTIONS (2)
  - Surgery [Unknown]
  - Adverse drug reaction [Unknown]
